FAERS Safety Report 8939940 (Version 1)
Quarter: 2012Q4

REPORT INFORMATION
  Report Type: 
  Country: DE (occurrence: DE)
  Receive Date: 20121203
  Receipt Date: 20121203
  Transmission Date: 20130627
  Serious: Yes (Hospitalization)
  Sender: FDA-Public Use
  Company Number: DE-009507513-1211DEU010606

PATIENT
  Age: 53 Year
  Sex: Male

DRUGS (5)
  1. MIRTAZAPINE [Suspect]
     Dosage: 15 mg, qd
     Route: 048
     Dates: start: 20120701, end: 20120802
  2. MIRTAZAPINE [Suspect]
     Dosage: 30 mg, qd
     Route: 048
     Dates: start: 20120803, end: 20120812
  3. MIRTAZAPINE [Suspect]
     Dosage: 45 mg, qd
     Route: 048
     Dates: start: 20120813, end: 20120820
  4. MIRTAZAPINE [Suspect]
     Dosage: 15 mg, qd
     Route: 048
     Dates: start: 20120824
  5. MIRTAZAPINE [Suspect]
     Dosage: UNK
     Dates: start: 2011

REACTIONS (2)
  - Restless legs syndrome [Recovering/Resolving]
  - Restless legs syndrome [Recovered/Resolved]
